FAERS Safety Report 9386716 (Version 1)
Quarter: 2013Q3

REPORT INFORMATION
  Report Type: Spontaneous
  Country: FR (occurrence: FR)
  Receive Date: 20130708
  Receipt Date: 20130708
  Transmission Date: 20140515
  Serious: Yes (Hospitalization)
  Sender: FDA-Public Use
  Company Number: FR-TEVA-417095ISR

PATIENT
  Age: 78 Year
  Sex: Male

DRUGS (9)
  1. FUROSEMIDE TEVA 40MG [Suspect]
     Indication: DYSPNOEA
     Dosage: 40 MILLIGRAM DAILY;
     Route: 048
     Dates: start: 20130529, end: 20130608
  2. PLAVIX [Concomitant]
  3. BISOPROLOL [Concomitant]
     Dosage: 10 MILLIGRAM DAILY;
  4. ENALAPRIL [Concomitant]
     Dosage: 20 MILLIGRAM DAILY;
  5. TAHOR [Concomitant]
     Dosage: 10 MILLIGRAM DAILY;
  6. KARDEGIC [Concomitant]
     Dosage: 75 MILLIGRAM DAILY;
  7. DISTILBENE [Concomitant]
     Dosage: 2 MILLIGRAM DAILY;
  8. XATRAL LP [Concomitant]
     Dosage: 10 MILLIGRAM DAILY;
  9. OGASTORO [Concomitant]

REACTIONS (4)
  - Syncope [Recovered/Resolved]
  - Asthenia [Recovering/Resolving]
  - Hot flush [Recovered/Resolved]
  - Blood creatinine increased [Unknown]
